FAERS Safety Report 13097273 (Version 2)
Quarter: 2017Q1

REPORT INFORMATION
  Report Type: Spontaneous
  Country: IE (occurrence: IE)
  Receive Date: 20170109
  Receipt Date: 20170123
  Transmission Date: 20170428
  Serious: Yes (Other)
  Sender: FDA-Public Use
  Company Number: IE-PFIZER INC-2016574169

PATIENT
  Age: 41 Year
  Sex: Male
  Weight: 72 kg

DRUGS (1)
  1. CHAMPIX [Suspect]
     Active Substance: VARENICLINE TARTRATE
     Indication: SMOKING CESSATION THERAPY
     Dosage: 1 MG, 2X/DAY
     Dates: start: 20120118

REACTIONS (9)
  - Anxiety [Unknown]
  - Abdominal distension [Unknown]
  - Dyspepsia [Unknown]
  - Depression suicidal [Unknown]
  - Crying [Unknown]
  - Stress [Unknown]
  - Constipation [Unknown]
  - Panic attack [Unknown]
  - Neck pain [Unknown]

NARRATIVE: CASE EVENT DATE: 20120203
